FAERS Safety Report 8807895 (Version 1)
Quarter: 2012Q4

REPORT INFORMATION
  Report Type: 
  Country: CO (occurrence: CO)
  Receive Date: 20120925
  Receipt Date: 20120925
  Transmission Date: 20130627
  Serious: Yes (Death, Hospitalization)
  Sender: FDA-Public Use
  Company Number: CO-ROCHE-1126125

PATIENT
  Age: 61 Year
  Sex: Male

DRUGS (2)
  1. TENECTEPLASE [Suspect]
     Indication: ACUTE MYOCARDIAL INFARCTION
     Route: 042
     Dates: start: 20120826, end: 20120826
  2. METFORMIN [Concomitant]

REACTIONS (2)
  - Cerebral haemorrhage [Fatal]
  - Coma scale [Unknown]
